FAERS Safety Report 25775994 (Version 3)
Quarter: 2025Q4

REPORT INFORMATION
  Report Type: Spontaneous
  Country: NC (occurrence: NC)
  Receive Date: 20250909
  Receipt Date: 20251014
  Transmission Date: 20260118
  Serious: Yes (Hospitalization, Other)
  Sender: ASTELLAS
  Company Number: NC-ASTELLAS-2025-AER-048310

PATIENT
  Age: 67 Year
  Sex: Female
  Weight: 70 kg

DRUGS (5)
  1. TACROLIMUS [Interacting]
     Active Substance: TACROLIMUS
     Indication: Prophylaxis against transplant rejection
     Route: 048
     Dates: start: 2019
  2. TACROLIMUS [Interacting]
     Active Substance: TACROLIMUS
     Dosage: INCREASED ON GRAFT CONTEXT
     Route: 048
     Dates: start: 202508
  3. TACROLIMUS [Interacting]
     Active Substance: TACROLIMUS
     Dosage: DECREASED
     Route: 048
     Dates: start: 20250827, end: 20250902
  4. TACROLIMUS [Interacting]
     Active Substance: TACROLIMUS
     Route: 048
     Dates: start: 20250903
  5. IMBRUVICA [Interacting]
     Active Substance: IBRUTINIB
     Indication: Central nervous system lymphoma
     Dosage: EVERY DAY
     Route: 048
     Dates: start: 20250717

REACTIONS (5)
  - Immunosuppressant drug level increased [Recovered/Resolved]
  - Central nervous system lymphoma [Unknown]
  - Hypercalcaemia [Unknown]
  - Secondary hyperthyroidism [Unknown]
  - Drug interaction [Unknown]

NARRATIVE: CASE EVENT DATE: 20250601
